FAERS Safety Report 6473348-7 (Version None)
Quarter: 2009Q4

REPORT INFORMATION
  Report Type: 
  Country: None (occurrence: None)
  Receive Date: 20091204
  Receipt Date: 20081212
  Transmission Date: 20100525
  Serious: Yes (Hospitalization, Other)
  Sender: FDA-Public Use
  Company Number: US-ELI_LILLY_AND_COMPANY-US200809002776

PATIENT
  Age: 47 Year
  Sex: Female
  Weight: 68.027 kg

DRUGS (14)
  1. CYMBALTA [Suspect]
     Dosage: 1 D/F, UNK
  2. CYMBALTA [Interacting]
     Dosage: 1 D/F, UNK
  3. LYRICA [Concomitant]
     Indication: NEURALGIA
     Dosage: 50 MG, 3/D
  4. SSRI [Concomitant]
  5. ASPIRIN [Concomitant]
  6. BACLOFEN [Concomitant]
     Dosage: 20 MG, 2/D
  7. CLONAZEPAM [Concomitant]
     Dosage: 0.5 MG, EVERY 6 HRS
  8. GLIPIZIDE [Concomitant]
  9. SYNTHROID [Concomitant]
  10. GLUCOPHAGE [Concomitant]
  11. NEXIUM [Concomitant]
  12. DETROL [Concomitant]
  13. MORPHINE [Concomitant]
  14. DILAUDID [Concomitant]

REACTIONS (4)
  - FALL [None]
  - MENTAL STATUS CHANGES [None]
  - MYOCLONUS [None]
  - SEROTONIN SYNDROME [None]
